FAERS Safety Report 10077448 (Version 2)
Quarter: 2014Q2

REPORT INFORMATION
  Report Type: Spontaneous
  Country: US (occurrence: US)
  Receive Date: 20140414
  Receipt Date: 20140414
  Transmission Date: 20141212
  Serious: No
  Sender: FDA-Public Use
  Company Number: US-BANPHARM-20131530

PATIENT
  Age: 86 Year
  Sex: Male
  Weight: 68.04 kg

DRUGS (3)
  1. ALEVE LIQUID GELS 220 MG [Suspect]
     Indication: ARTHRITIS
     Dosage: 1 DF, BID,
     Route: 048
     Dates: start: 201305
  2. ARTH ARREST [Concomitant]
     Route: 061
  3. GLAUCOMA EYEDROPS [Concomitant]

REACTIONS (6)
  - Peripheral swelling [Recovering/Resolving]
  - Swelling [Not Recovered/Not Resolved]
  - Grip strength decreased [Not Recovered/Not Resolved]
  - Joint swelling [Recovering/Resolving]
  - Off label use [Unknown]
  - Incorrect drug administration duration [Unknown]
